FAERS Safety Report 15290520 (Version 2)
Quarter: 2018Q3

REPORT INFORMATION
  Report Type: Spontaneous
  Country: SE (occurrence: SE)
  Receive Date: 20180817
  Receipt Date: 20180920
  Transmission Date: 20181010
  Serious: Yes (Death)
  Sender: FDA-Public Use
  Company Number: SE-PFIZER INC-2018329803

PATIENT
  Age: 73 Year
  Sex: Female

DRUGS (26)
  1. ENALAPRIL KRKA [Concomitant]
     Active Substance: ENALAPRIL MALEATE
     Dosage: UNK
  2. RINEXIN [Concomitant]
     Active Substance: PHENYLPROPANOLAMINE
     Dosage: UNK, AS NEEDED
  3. NASONEX [Concomitant]
     Active Substance: MOMETASONE FUROATE
     Dosage: UNK, AS NEEDED
  4. MORFIN MEDA [Concomitant]
     Active Substance: MORPHINE SULFATE
     Dosage: UNK, AS NEEDED
  5. DIFLUCAN [Concomitant]
     Active Substance: FLUCONAZOLE
     Dosage: UNK, AS NEEDED
  6. CALCICHEW D3 CITRON [CALCIUM CARBONATE;COLECALCIFEROL] [Concomitant]
     Dosage: UNK
  7. DUROGESIC [Concomitant]
     Active Substance: FENTANYL
     Dosage: UNK
  8. CARDIZEM RETARD [Suspect]
     Active Substance: DILTIAZEM HYDROCHLORIDE
     Indication: ANGINA PECTORIS
     Dosage: 120 MG, 2X/DAY, MORNING AND EVENING
     Route: 048
     Dates: start: 20010214
  9. TAMOXIFEN MYLAN [Concomitant]
     Active Substance: TAMOXIFEN
     Dosage: UNK
  10. OCULAC [POVIDONE] [Concomitant]
     Dosage: UNK
  11. DENTAN [Concomitant]
     Active Substance: SODIUM FLUORIDE
     Dosage: UNK, AS NEEDED
  12. PREDNISOLON PFIZER [Concomitant]
     Active Substance: PREDNISOLONE
     Dosage: UNK
  13. METOPROLOL TARTRATE. [Suspect]
     Active Substance: METOPROLOL TARTRATE
     Indication: ANGINA PECTORIS
  14. URSOFALK [Concomitant]
     Active Substance: URSODIOL
     Dosage: UNK
  15. FLUORETTE MINT [Concomitant]
     Dosage: UNK, AS NEEDED
  16. IMOVANE [Concomitant]
     Active Substance: ZOPICLONE
     Dosage: UNK, AS NEEDED
  17. METOPROLOL TARTRATE. [Suspect]
     Active Substance: METOPROLOL TARTRATE
     Indication: HYPERTENSION
     Dosage: 50 MG, 1X/DAY IN THE MORNING
     Route: 048
     Dates: start: 19950613
  18. XERODENT [MALIC ACID;SODIUM FLUORIDE] [Concomitant]
     Dosage: UNK, AS NEEDED
  19. VISCO TEARS [Concomitant]
     Dosage: UNK
  20. TROMBYL [Concomitant]
     Active Substance: ASPIRIN
     Dosage: UNK
  21. PREDNISOLON ALTERNOVA [Concomitant]
     Active Substance: PREDNISOLONE
     Dosage: UNK
  22. BETOLVIDON [Concomitant]
     Active Substance: CYANOCOBALAMIN
     Dosage: UNK
  23. REPLENS [Concomitant]
     Active Substance: CARBOMER 934\GLYCERIN\METHYLPARABEN\PROPYLPARABEN\SODIUM HYDROXIDE
     Dosage: UNK
  24. FOLACIN [FOLIC ACID] [Concomitant]
     Dosage: UNK
  25. IMDUR [Concomitant]
     Active Substance: ISOSORBIDE MONONITRATE
     Dosage: UNK
  26. PROLIA [Concomitant]
     Active Substance: DENOSUMAB
     Dosage: UNK

REACTIONS (3)
  - Bradycardia [Fatal]
  - Toxicity to various agents [Fatal]
  - Hypotension [Fatal]

NARRATIVE: CASE EVENT DATE: 201805
